FAERS Safety Report 7982461-4 (Version None)
Quarter: 2011Q4

REPORT INFORMATION
  Report Type: 
  Country: None (occurrence: None)
  Receive Date: 20111215
  Receipt Date: 20111212
  Transmission Date: 20120403
  Serious: Yes (Life-Threatening, Hospitalization)
  Sender: FDA-Public Use
  Company Number: PHEH2011US011572

PATIENT
  Sex: Female

DRUGS (4)
  1. CIPROFLOXACIN [Suspect]
  2. ZELNORM [Suspect]
     Dosage: 1 DF, UNK
     Route: 048
  3. ANTIHYPERTENSIVE DRUGS [Concomitant]
  4. THYROID TAB [Concomitant]

REACTIONS (3)
  - APPARENT DEATH [None]
  - MYOCARDIAL INFARCTION [None]
  - DYSPNOEA [None]
